FAERS Safety Report 9204649 (Version 3)
Quarter: 2013Q2

REPORT INFORMATION
  Report Type: Spontaneous
  Country: US (occurrence: US)
  Receive Date: 20130402
  Receipt Date: 20130506
  Transmission Date: 20140414
  Serious: Yes (Death, Hospitalization, Disabling, Other)
  Sender: FDA-Public Use
  Company Number: US-009507513-1206USA04839

PATIENT
  Sex: Female

DRUGS (3)
  1. FOSAMAX [Suspect]
     Indication: OSTEOPOROSIS
     Dosage: 70 MG, UNK
     Route: 048
     Dates: start: 200512
  2. FOSAMAX [Suspect]
     Dosage: UNK MG, UNK
     Route: 048
     Dates: start: 200802
  3. ALENDRONATE SODIUM [Suspect]
     Indication: OSTEOPOROSIS
     Dosage: 70 MG, UNK
     Dates: start: 200803, end: 201004

REACTIONS (60)
  - Squamous cell carcinoma [Fatal]
  - Turbinectomy [Unknown]
  - Acute myocardial infarction [Unknown]
  - Renal failure acute [Unknown]
  - Respiratory failure [Unknown]
  - Transaminases increased [Unknown]
  - Renal failure [Unknown]
  - Gastrointestinal haemorrhage [Unknown]
  - Unresponsive to stimuli [Unknown]
  - Skin graft [Unknown]
  - Anaemia [Unknown]
  - Maxillofacial operation [Unknown]
  - Osteonecrosis [Unknown]
  - Rhabdomyolysis [Unknown]
  - Tooth extraction [Unknown]
  - Osteonecrosis of jaw [Unknown]
  - Osteomyelitis acute [Unknown]
  - Periodontal operation [Unknown]
  - Liver injury [Unknown]
  - Oral infection [Unknown]
  - Impaired healing [Unknown]
  - Gingival bleeding [Unknown]
  - Endodontic procedure [Unknown]
  - Osteoarthritis [Unknown]
  - Periodontitis [Unknown]
  - Tooth extraction [Unknown]
  - Dental necrosis [Unknown]
  - Periodontal operation [Unknown]
  - Bone loss [Unknown]
  - Periodontitis [Not Recovered/Not Resolved]
  - Endodontic procedure [Unknown]
  - Impaired healing [Unknown]
  - Dental necrosis [Unknown]
  - Gingival operation [Unknown]
  - Spinal compression fracture [Unknown]
  - Arthropathy [Unknown]
  - Non-cardiac chest pain [Unknown]
  - Arthritis [Unknown]
  - Necrosis [Unknown]
  - Periodontal disease [Unknown]
  - Gastrointestinal disorder [Unknown]
  - Weight decreased [Unknown]
  - Fistula [Unknown]
  - Fistula [Unknown]
  - Somnolence [Unknown]
  - Lobar pneumonia [Unknown]
  - Activities of daily living impaired [Unknown]
  - Lung infiltration [Unknown]
  - Appendicectomy [Unknown]
  - Poor quality sleep [Unknown]
  - Stomatitis [Unknown]
  - Skin disorder [Unknown]
  - Osteopenia [Unknown]
  - Mouth haemorrhage [Unknown]
  - Diarrhoea [Unknown]
  - Musculoskeletal pain [Unknown]
  - Musculoskeletal pain [Unknown]
  - Erythema [Unknown]
  - Headache [Unknown]
  - Malaise [Unknown]
